FAERS Safety Report 7275275-4 (Version None)
Quarter: 2011Q1

REPORT INFORMATION
  Report Type: 
  Country: None (occurrence: None)
  Receive Date: 20110204
  Receipt Date: 20110121
  Transmission Date: 20110831
  Serious: Yes (Death, Other)
  Sender: FDA-Public Use
  Company Number: US-ROCHE-754747

PATIENT
  Sex: Male
  Weight: 68 kg

DRUGS (6)
  1. CELEXA [Concomitant]
     Indication: DEPRESSION
     Dates: start: 20070101
  2. FISH OIL [Concomitant]
     Dates: start: 20070101
  3. NAPROXEN SODIUM [Suspect]
     Route: 048
     Dates: start: 20060101
  4. FOLIC ACID [Concomitant]
     Dates: start: 20040101
  5. ALLOPURINOL [Concomitant]
     Indication: GOUT
     Dates: start: 20060101
  6. GALANTAMINE HYDROBROMIDE [Concomitant]
     Dates: start: 20090501

REACTIONS (3)
  - GASTROOESOPHAGEAL REFLUX DISEASE [None]
  - LYME DISEASE [None]
  - ACUTE MYOCARDIAL INFARCTION [None]
